FAERS Safety Report 8442709-9 (Version None)
Quarter: 2012Q2

REPORT INFORMATION
  Report Type: 
  Country: None (occurrence: None)
  Receive Date: 20120615
  Receipt Date: 20120612
  Transmission Date: 20120825
  Serious: Yes (Death, Hospitalization)
  Sender: FDA-Public Use
  Company Number: GW-ABBOTT-12P-143-0945400-00

PATIENT
  Sex: Male

DRUGS (7)
  1. ZIDOVUDINE [Concomitant]
     Indication: HIV INFECTION
     Route: 048
     Dates: start: 20111031
  2. LAMIVUDINE [Concomitant]
     Indication: HIV INFECTION
     Route: 048
     Dates: start: 20110830
  3. COTRIM [Concomitant]
     Indication: PROPHYLAXIS
     Route: 048
     Dates: start: 20110830
  4. FLUCONAZOLE [Concomitant]
     Indication: PRODUCT USED FOR UNKNOWN INDICATION
     Route: 048
     Dates: start: 20110830, end: 20110901
  5. ABACAVIR [Concomitant]
     Indication: HIV INFECTION
     Route: 048
     Dates: start: 20110830, end: 20111030
  6. KALETRA [Suspect]
     Indication: HIV INFECTION
     Dosage: UNIT DOSE: 200/50MG
     Route: 048
     Dates: start: 20110830
  7. LEUCOVORIN CALCIUM [Concomitant]
     Indication: VITAMIN SUPPLEMENTATION
     Route: 048
     Dates: start: 20110830

REACTIONS (1)
  - DEATH [None]
